FAERS Safety Report 8796222 (Version 4)
Quarter: 2012Q4

REPORT INFORMATION
  Report Type: 
  Country: JP (occurrence: JP)
  Receive Date: 20120920
  Receipt Date: 20121123
  Transmission Date: 20130627
  Serious: Yes (Hospitalization)
  Sender: FDA-Public Use
  Company Number: JP-PFIZER INC-2012230441

PATIENT
  Age: 64 Year
  Sex: Male
  Weight: 54 kg

DRUGS (2)
  1. CHAMPIX [Suspect]
     Indication: NICOTINE DEPENDENCE
     Dosage: 0.5 mg, 1x/day
     Route: 048
     Dates: start: 20120720, end: 20120722
  2. CHAMPIX [Suspect]
     Dosage: 0.5 mg, 2x/day
     Route: 048
     Dates: start: 20120723, end: 20120726

REACTIONS (1)
  - Interstitial lung disease [Not Recovered/Not Resolved]
